FAERS Safety Report 4906888-X (Version None)
Quarter: 2006Q1

REPORT INFORMATION
  Report Type: 
  Country: None (occurrence: None)
  Receive Date: 20060207
  Receipt Date: 20060120
  Transmission Date: 20060701
  Serious: Yes (Hospitalization)
  Sender: FDA-Public Use
  Company Number: DE200601003575

PATIENT
  Age: 75 Year
  Sex: Female

DRUGS (2)
  1. FORTEO [Suspect]
     Indication: OSTEOPOROSIS
     Dates: start: 20051128, end: 20060101
  2. FORTEO PEN (FORTEO PEN) [Concomitant]

REACTIONS (5)
  - ADENOCARCINOMA [None]
  - METASTASES TO BONE [None]
  - MYELODYSPLASTIC SYNDROME [None]
  - PULMONARY EMBOLISM [None]
  - WHITE BLOOD CELL COUNT DECREASED [None]
